FAERS Safety Report 21896992 (Version 1)
Quarter: 2023Q1

REPORT INFORMATION
  Report Type: Spontaneous
  Country: US (occurrence: US)
  Receive Date: 20230123
  Receipt Date: 20230123
  Transmission Date: 20230417
  Serious: No
  Sender: FDA-Public Use
  Company Number: US-PERRIGO-22US004421

PATIENT
  Age: 2 Month
  Sex: Male
  Weight: 4.989 kg

DRUGS (1)
  1. IBUPROFEN [Suspect]
     Active Substance: IBUPROFEN
     Indication: Wrong product administered
     Dosage: 600 MG, SINGLE
     Route: 048
     Dates: start: 20220318, end: 20220318

REACTIONS (2)
  - Wrong product administered [Recovered/Resolved]
  - Accidental overdose [Recovered/Resolved]

NARRATIVE: CASE EVENT DATE: 20220318
